FAERS Safety Report 17148592 (Version 1)
Quarter: 2019Q4

REPORT INFORMATION
  Report Type: Spontaneous
  Country: SE (occurrence: SE)
  Receive Date: 20191213
  Receipt Date: 20191213
  Transmission Date: 20200122
  Serious: Yes (Hospitalization, Other)
  Sender: FDA-Public Use
  Company Number: SE-SA-2019SA337851

PATIENT
  Age: 40 Year
  Sex: Male

DRUGS (5)
  1. DULOXETINE HYDROCHLORIDE. [Suspect]
     Active Substance: DULOXETINE HYDROCHLORIDE
     Dosage: 60 MG
     Route: 048
     Dates: start: 20181003, end: 20181003
  2. STILNOCT [Suspect]
     Active Substance: ZOLPIDEM TARTRATE
     Dosage: 10 MG (2 UNIT OF 5 MG)
     Route: 048
     Dates: start: 20181003, end: 20181003
  3. OLANZAPINE. [Suspect]
     Active Substance: OLANZAPINE
     Dosage: 14 MG (2 UNIT OF 7.5 MG)
     Route: 048
     Dates: start: 20181003, end: 20181003
  4. PROPAVAN [Suspect]
     Active Substance: PROPIOMAZINE
     Dosage: 250 MG (10 UNIT OF 25 MG)
     Route: 048
     Dates: start: 20181003, end: 20181003
  5. PROMETHAZINE HYDROCHLORIDE. [Suspect]
     Active Substance: PROMETHAZINE HYDROCHLORIDE
     Dosage: 150 MG (3 UNIT OF 50 MG)
     Route: 048
     Dates: start: 20181003, end: 20181003

REACTIONS (3)
  - Lethargy [Unknown]
  - Intentional self-injury [Unknown]
  - Intentional overdose [Unknown]

NARRATIVE: CASE EVENT DATE: 20181003
